FAERS Safety Report 18587075 (Version 1)
Quarter: 2020Q4

REPORT INFORMATION
  Report Type: Spontaneous
  Country: PL (occurrence: PL)
  Receive Date: 20201207
  Receipt Date: 20201207
  Transmission Date: 20210114
  Serious: Yes (Other)
  Sender: FDA-Public Use
  Company Number: NVSC2020PL316787

PATIENT
  Age: 56 Year
  Sex: Female

DRUGS (5)
  1. RYDAPT [Suspect]
     Active Substance: MIDOSTAURIN
     Indication: PRODUCT USED FOR UNKNOWN INDICATION
     Dosage: 25 MG, QD
     Route: 065
  2. VORICONAZOLE. [Suspect]
     Active Substance: VORICONAZOLE
     Indication: PRODUCT USED FOR UNKNOWN INDICATION
     Dosage: UNK
     Route: 065
  3. MTX [Concomitant]
     Active Substance: METHOTREXATE SODIUM
     Indication: PRODUCT USED FOR UNKNOWN INDICATION
     Dosage: HIGH DOSE
     Route: 065
  4. RYDAPT [Suspect]
     Active Substance: MIDOSTAURIN
     Dosage: UNK
     Route: 065
     Dates: start: 202004
  5. ARA-C [Concomitant]
     Active Substance: CYTARABINE
     Indication: PRODUCT USED FOR UNKNOWN INDICATION
     Dosage: UNK
     Route: 065

REACTIONS (15)
  - Oedema peripheral [Unknown]
  - Staphylococcal infection [Unknown]
  - Second primary malignancy [Unknown]
  - Cyanosis [Unknown]
  - Liver sarcoidosis [Unknown]
  - Enterococcal infection [Unknown]
  - Blastic plasmacytoid dendritic cell neoplasia [Unknown]
  - Escherichia sepsis [Unknown]
  - Drug-induced liver injury [Unknown]
  - Deep vein thrombosis [Unknown]
  - Acute kidney injury [Unknown]
  - Enterobacter sepsis [Unknown]
  - Bronchopulmonary aspergillosis [Unknown]
  - Pneumonia [Unknown]
  - Acute graft versus host disease [Unknown]
